FAERS Safety Report 8900553 (Version 1)
Quarter: 2012Q4

REPORT INFORMATION
  Report Type: 
  Country: SE (occurrence: SE)
  Receive Date: 20121109
  Receipt Date: 20121109
  Transmission Date: 20130627
  Serious: Yes (Hospitalization)
  Sender: FDA-Public Use
  Company Number: SE-PFIZER INC-2012276753

PATIENT
  Age: 44 Year
  Sex: Female
  Weight: 75.5 kg

DRUGS (6)
  1. GENOTROPIN [Suspect]
     Dosage: 0.2 mg, 1x/day, 7 injections/week
     Route: 058
     Dates: start: 20041118
  2. HYDROCORTISONE [Concomitant]
     Indication: ACTH DECREASED
     Dosage: UNK
     Dates: start: 19991004
  3. THERALEN [Concomitant]
     Indication: ANXIETY
     Dosage: UNK
     Dates: start: 20060316
  4. ZOPICLONE [Concomitant]
     Indication: SLEEPLESSNESS
     Dosage: UNK
     Dates: start: 20060316
  5. CYMBALTA [Concomitant]
     Indication: DEPRESSION
     Dosage: UNK
     Dates: start: 20060607
  6. LEVAXIN [Concomitant]
     Indication: HYPOTHYROIDISM
     Dosage: UNK
     Dates: start: 20070327

REACTIONS (2)
  - Dizziness [Unknown]
  - Malaise [Unknown]
